FAERS Safety Report 9777128 (Version 2)
Quarter: 2014Q1

REPORT INFORMATION
  Report Type: Spontaneous
  Country: US (occurrence: US)
  Receive Date: 20131221
  Receipt Date: 20140206
  Transmission Date: 20141002
  Serious: Yes (Life-Threatening)
  Sender: FDA-Public Use
  Company Number: US-B.I. PHARMACEUTICALS,INC./RIDGEFIELD-2013-BI-41373BP

PATIENT
  Age: 73 Year
  Sex: Female
  Weight: 78.47 kg

DRUGS (20)
  1. PRADAXA [Suspect]
     Indication: ATRIAL FIBRILLATION
     Dosage: 300 MG
     Route: 048
     Dates: start: 20131023, end: 20131205
  2. LISINOPRIL [Concomitant]
     Indication: HYPERTENSION
     Dosage: 5 MG
  3. AMBRISENTAN [Concomitant]
     Indication: PULMONARY HYPERTENSION
     Dosage: 10 MG
  4. HCTZ [Concomitant]
     Indication: HYPERTENSION
     Dosage: 12.5 MG
  5. GEMFIBROZIL [Concomitant]
     Indication: DYSLIPIDAEMIA
     Dosage: 1200 MG
  6. SIMVASTATIN [Concomitant]
     Indication: DYSLIPIDAEMIA
     Dosage: 40 MG
  7. OMEGA 3 FISH OIL [Concomitant]
     Indication: PRODUCT USED FOR UNKNOWN INDICATION
     Dosage: 1200 MG
  8. TYVASO [Concomitant]
     Indication: PRODUCT USED FOR UNKNOWN INDICATION
  9. ZYRTEC [Concomitant]
     Indication: PRODUCT USED FOR UNKNOWN INDICATION
  10. NAPHCON [Concomitant]
     Indication: PRODUCT USED FOR UNKNOWN INDICATION
     Dosage: EYE GTTS
  11. PREVACID [Concomitant]
     Indication: PRODUCT USED FOR UNKNOWN INDICATION
  12. SENNA [Concomitant]
     Indication: PRODUCT USED FOR UNKNOWN INDICATION
  13. MVI WITH IRON [Concomitant]
     Indication: PRODUCT USED FOR UNKNOWN INDICATION
     Route: 048
  14. VITAMIN B12 [Concomitant]
     Indication: PRODUCT USED FOR UNKNOWN INDICATION
     Route: 048
  15. CITRACAL WITH VITAMIN D [Concomitant]
     Indication: PRODUCT USED FOR UNKNOWN INDICATION
  16. TYLENOL ARTHRITIS [Concomitant]
     Indication: PRODUCT USED FOR UNKNOWN INDICATION
  17. QVAR [Concomitant]
     Indication: PRODUCT USED FOR UNKNOWN INDICATION
  18. ALBUTEROL [Concomitant]
     Indication: PRODUCT USED FOR UNKNOWN INDICATION
  19. FLUTICASONE [Concomitant]
     Indication: PRODUCT USED FOR UNKNOWN INDICATION
  20. VICODIN [Concomitant]
     Indication: PRODUCT USED FOR UNKNOWN INDICATION

REACTIONS (2)
  - Haemorrhage intracranial [Recovered/Resolved]
  - Headache [Recovered/Resolved]
